FAERS Safety Report 11111238 (Version 1)
Quarter: 2015Q2

REPORT INFORMATION
  Report Type: Spontaneous
  Country: AT (occurrence: AT)
  Receive Date: 20150513
  Receipt Date: 20150513
  Transmission Date: 20150821
  Serious: Yes (Death)
  Sender: FDA-Public Use
  Company Number: AT-ABBVIE-15P-009-1391310-00

PATIENT
  Age: 86 Year
  Sex: Male

DRUGS (1)
  1. DUODOPA [Suspect]
     Active Substance: CARBIDOPA\LEVODOPA
     Indication: PARKINSON^S DISEASE
     Dosage: MD 8.5, CR2.8, ED3.6
     Route: 050
     Dates: start: 20090303

REACTIONS (1)
  - Death [Fatal]

NARRATIVE: CASE EVENT DATE: 20150510
